FAERS Safety Report 24034915 (Version 1)
Quarter: 2024Q2

REPORT INFORMATION
  Report Type: Spontaneous
  Country: US (occurrence: None)
  Receive Date: 20240628
  Receipt Date: 20240628
  Transmission Date: 20240716
  Serious: No
  Sender: FDA-Public Use
  Company Number: None

PATIENT
  Age: 76 Year
  Sex: Male

DRUGS (1)
  1. LENALIDOMIDE [Suspect]
     Active Substance: LENALIDOMIDE
     Indication: Plasma cell myeloma
     Dosage: 10MG ONCE DAILY ORAL
     Route: 048
     Dates: start: 202307

REACTIONS (3)
  - Rash [None]
  - Discharge [None]
  - Adverse drug reaction [None]

NARRATIVE: CASE EVENT DATE: 20240625
